FAERS Safety Report 9518273 (Version 2)
Quarter: 2013Q4

REPORT INFORMATION
  Report Type: Spontaneous
  Country: GB (occurrence: GB)
  Receive Date: 20130912
  Receipt Date: 20131002
  Transmission Date: 20140711
  Serious: Yes (Hospitalization)
  Sender: FDA-Public Use
  Company Number: GB-UCBSA-097311

PATIENT
  Sex: Male

DRUGS (1)
  1. NEUPRO [Suspect]
     Route: 062

REACTIONS (1)
  - Emergency care [Unknown]
